FAERS Safety Report 6700029-4 (Version None)
Quarter: 2010Q2

REPORT INFORMATION
  Report Type: 
  Country: None (occurrence: None)
  Receive Date: 20100422
  Receipt Date: 20100226
  Transmission Date: 20101027
  Serious: Yes (Hospitalization)
  Sender: FDA-Public Use
  Company Number: 2010AL000041

PATIENT
  Sex: Female

DRUGS (1)
  1. FOLOTYN [Suspect]
     Indication: T-CELL LYMPHOMA
     Dosage: 30 MG/M**2; IV
     Route: 042
     Dates: start: 20100219, end: 20100219

REACTIONS (1)
  - MUCOSAL INFLAMMATION [None]
